FAERS Safety Report 19011428 (Version 1)
Quarter: 2021Q1

REPORT INFORMATION
  Report Type: Spontaneous
  Country: US (occurrence: US)
  Receive Date: 20210315
  Receipt Date: 20210315
  Transmission Date: 20210420
  Serious: Yes (Other)
  Sender: FDA-Public Use
  Company Number: None

PATIENT
  Age: 71 Year
  Sex: Female
  Weight: 65.25 kg

DRUGS (5)
  1. HAWTHORNE BERRY [Concomitant]
  2. VITAMIN D3 [Concomitant]
     Active Substance: CHOLECALCIFEROL
  3. COENZYME Q10 [Concomitant]
     Active Substance: DIETARY SUPPLEMENT\UBIDECARENONE
  4. CALCIUM/MAGNESIUM CITRATE [Concomitant]
  5. AMLODIPINE BENSYLATE [Suspect]
     Active Substance: AMLODIPINE BESYLATE
     Indication: HYPERTENSION
     Dosage: ??          QUANTITY:30 TABLET(S);?
     Route: 048
     Dates: start: 20210215, end: 20210315

REACTIONS (7)
  - Fall [None]
  - Headache [None]
  - Product substitution issue [None]
  - Blood pressure increased [None]
  - Dizziness [None]
  - Hypoaesthesia [None]
  - Intentional product use issue [None]

NARRATIVE: CASE EVENT DATE: 20210311
